FAERS Safety Report 23755698 (Version 2)
Quarter: 2024Q2

REPORT INFORMATION
  Report Type: Spontaneous
  Country: US (occurrence: US)
  Receive Date: 20240418
  Receipt Date: 20240607
  Transmission Date: 20240715
  Serious: Yes (Hospitalization, Other)
  Sender: FDA-Public Use
  Company Number: US-AMGEN-USASP2024073226

PATIENT
  Sex: Female

DRUGS (2)
  1. INFLIXIMAB [Suspect]
     Active Substance: INFLIXIMAB
     Indication: Autoimmune disorder
     Dosage: UNK
     Route: 065
  2. ETANERCEPT [Suspect]
     Active Substance: ETANERCEPT
     Indication: Autoimmune disorder
     Dosage: UNK
     Route: 065

REACTIONS (10)
  - Gestational diabetes [Unknown]
  - Autoimmune disorder [Unknown]
  - Pre-eclampsia [Unknown]
  - Induced labour [Unknown]
  - Premature delivery [Unknown]
  - Small for dates baby [Unknown]
  - Large for dates baby [Unknown]
  - Chronic villitis of unknown etiology [Unknown]
  - Maternal exposure during pregnancy [Unknown]
  - Caesarean section [Unknown]
